FAERS Safety Report 12076980 (Version 1)
Quarter: 2016Q1

REPORT INFORMATION
  Report Type: Spontaneous
  Country: BR (occurrence: BR)
  Receive Date: 20160215
  Receipt Date: 20160215
  Transmission Date: 20160526
  Serious: Yes (Death, Hospitalization, Other)
  Sender: FDA-Public Use
  Company Number: BR-JUBILANT CADISTA PHARMACEUTICALS-2016JUB00034

PATIENT
  Age: 26 Year
  Sex: Female

DRUGS (1)
  1. PREDNISONE. [Suspect]
     Active Substance: PREDNISONE
     Route: 065

REACTIONS (5)
  - Drug abuse [Fatal]
  - Cushing^s syndrome [Fatal]
  - Diabetes mellitus [Unknown]
  - Hypertension [Unknown]
  - Pancreatitis [Fatal]
